FAERS Safety Report 15596154 (Version 2)
Quarter: 2019Q4

REPORT INFORMATION
  Report Type: Spontaneous
  Country: US (occurrence: US)
  Receive Date: 20181107
  Receipt Date: 20191101
  Transmission Date: 20200122
  Serious: Yes (Hospitalization, Other)
  Sender: FDA-Public Use
  Company Number: US-ASSERTIO THERAPEUTICS, INC.-US-2018DEP001870

PATIENT
  Age: 70 Year
  Sex: Female

DRUGS (3)
  1. GRALISE [Suspect]
     Active Substance: GABAPENTIN
     Indication: BACK PAIN
     Dosage: 1800 MG, UNK
     Route: 048
  2. GRALISE [Suspect]
     Active Substance: GABAPENTIN
     Dosage: 1800 MG, QD
     Route: 048
     Dates: start: 20170331
  3. TRAMADOL. [Concomitant]
     Active Substance: TRAMADOL
     Indication: PRODUCT USED FOR UNKNOWN INDICATION

REACTIONS (3)
  - Upper limb fracture [Unknown]
  - Product use in unapproved indication [Unknown]
  - Fall [Unknown]

NARRATIVE: CASE EVENT DATE: 20170331
